FAERS Safety Report 6326313-4 (Version None)
Quarter: 2009Q3

REPORT INFORMATION
  Report Type: 
  Country: None (occurrence: None)
  Receive Date: 20090821
  Receipt Date: 20090807
  Transmission Date: 20100115
  Serious: Yes (Hospitalization, Other)
  Sender: FDA-Public Use
  Company Number: PAR_03134_2009

PATIENT
  Age: 52 Year
  Sex: Female

DRUGS (1)
  1. HYDROCODONE BITARTRATE + IBUPROFEN [Suspect]
     Indication: BACK PAIN
     Dosage: ([15 MG/400 MG, EVRY FOUR HOURS) 1 YEAR UNTIL UNKNOWN

REACTIONS (12)
  - AMNESIA [None]
  - BACTERIAL PYELONEPHRITIS [None]
  - BLOOD SODIUM DECREASED [None]
  - CONFUSIONAL STATE [None]
  - DECREASED APPETITE [None]
  - DIALYSIS [None]
  - ESCHERICHIA INFECTION [None]
  - HAEMODIALYSIS [None]
  - HAEMOGLOBIN DECREASED [None]
  - KIDNEY ENLARGEMENT [None]
  - PYELONEPHRITIS ACUTE [None]
  - RENAL FAILURE ACUTE [None]
